FAERS Safety Report 13332829 (Version 1)
Quarter: 2017Q1

REPORT INFORMATION
  Report Type: Spontaneous
  Country: US (occurrence: US)
  Receive Date: 20170314
  Receipt Date: 20170314
  Transmission Date: 20170428
  Serious: No
  Sender: FDA-Public Use
  Company Number: US-PFIZER INC-2017108491

PATIENT
  Age: 28 Year
  Sex: Female
  Weight: 75.3 kg

DRUGS (3)
  1. INTERFERON ALFA NOS [Suspect]
     Active Substance: INTERFERON ALFA-2A OR INTERFERON ALFA-2B
     Dosage: UNK, MONTH OF IV TREATMENTS, AND THEN SHOTS SHE GOT THREE DAYS A WEEK AT HOME
     Route: 042
     Dates: end: 201605
  2. MORPHINE SULFATE. [Suspect]
     Active Substance: MORPHINE SULFATE
     Dosage: UNK
  3. OXYCODONE [Suspect]
     Active Substance: OXYCODONE
     Dosage: UNK

REACTIONS (1)
  - Constipation [Unknown]
